FAERS Safety Report 12508678 (Version 3)
Quarter: 2016Q3

REPORT INFORMATION
  Report Type: Spontaneous
  Country: US (occurrence: US)
  Receive Date: 20160629
  Receipt Date: 20160812
  Transmission Date: 20161109
  Serious: No
  Sender: FDA-Public Use
  Company Number: US-BRISTOL-MYERS SQUIBB COMPANY-BMS-2016-047676

PATIENT
  Sex: Female

DRUGS (5)
  1. SOVALDI [Concomitant]
     Active Substance: SOFOSBUVIR
     Indication: HEPATITIS C
     Dosage: UNK
     Route: 065
     Dates: start: 20160530
  2. DAKLINZA [Suspect]
     Active Substance: DACLATASVIR
     Dosage: UNK
     Route: 048
     Dates: start: 20160627
  3. LISINOPRIL. [Concomitant]
     Active Substance: LISINOPRIL
     Indication: PRODUCT USED FOR UNKNOWN INDICATION
     Dosage: 20 MG, QD
     Route: 065
  4. RIBAVIRIN. [Concomitant]
     Active Substance: RIBAVIRIN
     Indication: PRODUCT USED FOR UNKNOWN INDICATION
     Route: 065
  5. DAKLINZA [Suspect]
     Active Substance: DACLATASVIR
     Indication: HEPATITIS C
     Dosage: 60 MG, QD
     Route: 048
     Dates: start: 20160530, end: 20160603

REACTIONS (8)
  - Pruritus [Recovered/Resolved]
  - Muscular weakness [Recovered/Resolved]
  - Drug dose omission [Recovered/Resolved]
  - Hypotension [Recovered/Resolved]
  - Paraesthesia [Recovered/Resolved]
  - Ocular discomfort [Recovered/Resolved]
  - Headache [Recovered/Resolved]
  - Hypoaesthesia oral [Recovered/Resolved]
